FAERS Safety Report 17463125 (Version 1)
Quarter: 2020Q1

REPORT INFORMATION
  Report Type: Report from Study
  Country: None (occurrence: CA)
  Receive Date: 20200226
  Receipt Date: 20200226
  Transmission Date: 20200409
  Serious: Yes (Other)
  Sender: FDA-Public Use
  Company Number: CA-ABBVIE-20K-028-3289066-00

PATIENT
  Sex: Female

DRUGS (1)
  1. HUMIRA [Suspect]
     Active Substance: ADALIMUMAB
     Indication: CROHN^S DISEASE
     Route: 058
     Dates: start: 20150422

REACTIONS (9)
  - Ear infection [Recovered/Resolved]
  - Pain [Unknown]
  - Nasopharyngitis [Not Recovered/Not Resolved]
  - Pharyngeal ulceration [Recovered/Resolved]
  - Infection susceptibility increased [Unknown]
  - Intestinal obstruction [Unknown]
  - Mouth ulceration [Recovered/Resolved]
  - Injection site pain [Unknown]
  - Hypophagia [Unknown]

NARRATIVE: CASE EVENT DATE: 2019
